FAERS Safety Report 9399898 (Version 1)
Quarter: 2013Q3

REPORT INFORMATION
  Report Type: Spontaneous
  Country: CN (occurrence: CN)
  Receive Date: 20130715
  Receipt Date: 20130715
  Transmission Date: 20140515
  Serious: Yes (Other)
  Sender: FDA-Public Use
  Company Number: CN-BAYER-2013-082818

PATIENT
  Age: 80 Year
  Sex: Female

DRUGS (2)
  1. AVELOX [Suspect]
     Indication: PNEUMONITIS
     Dosage: UNK
     Route: 042
     Dates: start: 20130703, end: 20130705
  2. CEPHALEXIN [Concomitant]

REACTIONS (3)
  - Depressed level of consciousness [Not Recovered/Not Resolved]
  - Dysphoria [Not Recovered/Not Resolved]
  - Hallucination [Not Recovered/Not Resolved]
